FAERS Safety Report 4975528-6 (Version None)
Quarter: 2006Q2

REPORT INFORMATION
  Report Type: 
  Country: None (occurrence: None)
  Receive Date: 20060418
  Receipt Date: 20060113
  Transmission Date: 20061013
  Serious: Yes (Disabling)
  Sender: FDA-Public Use
  Company Number: US-ROCHE-431824

PATIENT
  Age: 51 Year
  Sex: Male
  Weight: 90.7 kg

DRUGS (16)
  1. PEGASYS [Suspect]
     Dosage: ROUTE REPORTED AS ^INJECTION^.
     Route: 050
     Dates: start: 20051112
  2. COPEGUS [Suspect]
     Route: 048
     Dates: start: 20051112
  3. HYDROCODONE BITARTRATE [Suspect]
     Indication: PAIN
     Dosage: FORM REPORTED AS ^PILL^.
     Route: 048
  4. PHENERGAN HCL [Suspect]
     Indication: NAUSEA
     Route: 048
     Dates: end: 20060112
  5. WELLBUTRIN [Suspect]
     Route: 048
  6. VITAMIN B-12 [Concomitant]
  7. LEXAPRO [Concomitant]
     Indication: DEPRESSION
     Route: 048
  8. LASIX [Concomitant]
     Route: 048
  9. POTASSIUM [Concomitant]
     Route: 048
  10. LIBRIUM [Concomitant]
     Route: 048
  11. HYDROCODONE BITARTRATE + ACETAMINOPHEN [Concomitant]
     Indication: PAIN
     Dosage: PRN
     Route: 048
  12. KLOR-CON M [Concomitant]
     Route: 048
  13. DOXEPIN [Concomitant]
     Dosage: 2 AT NIGHT
  14. PRILOSEC [Concomitant]
  15. ATIVAN [Concomitant]
  16. TRAMADOL HCL [Concomitant]
     Indication: PAIN
     Dosage: PRN

REACTIONS (6)
  - HALLUCINATION [None]
  - MEMORY IMPAIRMENT [None]
  - NAUSEA [None]
  - RASH [None]
  - SPEECH DISORDER [None]
  - VISION BLURRED [None]
